FAERS Safety Report 7913092-X (Version None)
Quarter: 2011Q4

REPORT INFORMATION
  Report Type: 
  Country: None (occurrence: None)
  Receive Date: 20111114
  Receipt Date: 20111109
  Transmission Date: 20120403
  Serious: Yes (Hospitalization)
  Sender: FDA-Public Use
  Company Number: DE-ABBOTT-11P-062-0864377-00

PATIENT
  Sex: Male

DRUGS (1)
  1. HUMIRA [Suspect]
     Indication: CROHN'S DISEASE
     Route: 058
     Dates: start: 20100105, end: 20110301

REACTIONS (6)
  - ABDOMINAL PAIN [None]
  - NEOPLASM MALIGNANT [None]
  - INTESTINAL FISTULA [None]
  - ABSCESS INTESTINAL [None]
  - DIVERTICULITIS [None]
  - DIVERTICULUM [None]
